FAERS Safety Report 7589076-0 (Version None)
Quarter: 2011Q3

REPORT INFORMATION
  Report Type: 
  Country: None (occurrence: None)
  Receive Date: 20110705
  Receipt Date: 20110621
  Transmission Date: 20111222
  Serious: Yes (Other)
  Sender: FDA-Public Use
  Company Number: US-BAYER-2011-022454

PATIENT
  Age: 23 Year
  Sex: Female
  Weight: 99.773 kg

DRUGS (3)
  1. IBUPROFEN [Concomitant]
  2. YASMIN [Suspect]
     Indication: CONTRACEPTION
     Dosage: 6-MONTH+#8217;S SUPPLY OF SAMPLES GIVEN
     Dates: start: 20081104, end: 20090201
  3. YAZ [Suspect]
     Indication: CONTRACEPTION
     Dosage: 6-MONTH+#8217;S SUPPLY OF SAMPLES GIVEN
     Dates: start: 20081104, end: 20090201

REACTIONS (7)
  - INJURY [None]
  - FEAR [None]
  - DEEP VEIN THROMBOSIS [None]
  - PHLEBITIS SUPERFICIAL [None]
  - PAIN [None]
  - PAIN IN EXTREMITY [None]
  - THROMBOSIS [None]
